FAERS Safety Report 8314261 (Version 2)
Quarter: 2013Q4

REPORT INFORMATION
  Report Type: Spontaneous
  Country: US (occurrence: US)
  Receive Date: 20111228
  Receipt Date: 20131119
  Transmission Date: 20140711
  Serious: Yes (Hospitalization)
  Sender: FDA-Public Use
  Company Number: US-GLAXOSMITHKLINE-A0934395A

PATIENT
  Age: 28 Year
  Sex: Female

DRUGS (1)
  1. AVANDIA [Suspect]
     Indication: DIABETES MELLITUS
     Dosage: 4MG TWICE PER DAY
     Route: 048
     Dates: start: 1999, end: 200208

REACTIONS (4)
  - Cerebrovascular accident [Not Recovered/Not Resolved]
  - Tremor [Unknown]
  - Neuropathy peripheral [Unknown]
  - Asthenia [Unknown]
